FAERS Safety Report 9690854 (Version 2)
Quarter: 2014Q1

REPORT INFORMATION
  Report Type: Spontaneous
  Country: DK (occurrence: US)
  Receive Date: 20131115
  Receipt Date: 20140110
  Transmission Date: 20141002
  Serious: Yes (Other)
  Sender: FDA-Public Use
  Company Number: US-FRI-1000051153

PATIENT
  Sex: Male

DRUGS (3)
  1. LEXAPRO [Suspect]
     Indication: MAJOR DEPRESSION
     Dates: start: 20030926
  2. XANAX [Concomitant]
     Indication: INSOMNIA
     Dates: start: 20030920
  3. KLONOPIN [Concomitant]
     Indication: MAJOR DEPRESSION
     Dates: start: 20030926, end: 20030929

REACTIONS (9)
  - Homicide [Unknown]
  - Suicidal behaviour [Unknown]
  - Skin burning sensation [Unknown]
  - Dizziness [Unknown]
  - Amnesia [Unknown]
  - Hallucination [Unknown]
  - Hostility [Unknown]
  - Emotional disorder [Unknown]
  - Depression [Unknown]
